FAERS Safety Report 5946865-3 (Version None)
Quarter: 2008Q4

REPORT INFORMATION
  Report Type: 
  Country: None (occurrence: None)
  Receive Date: 20081110
  Receipt Date: 20081103
  Transmission Date: 20090506
  Serious: Yes (Hospitalization, Other)
  Sender: FDA-Public Use
  Company Number: US-ABBOTT-08P-163-0485360-00

PATIENT
  Sex: Male
  Weight: 90.8 kg

DRUGS (7)
  1. ZEMPLAR [Suspect]
     Indication: RENAL FAILURE CHRONIC
     Dates: start: 20071201
  2. MERAPEX [Concomitant]
     Indication: RESTLESS LEGS SYNDROME
     Dosage: HALF OF A PILL A DAY
     Route: 048
  3. PROLOZOL [Concomitant]
     Indication: GASTRIC DISORDER
  4. AMIODARONE HCL [Concomitant]
     Indication: CARDIAC DISORDER
     Route: 048
  5. DILTIAZEM HCL [Concomitant]
     Indication: BLOOD PRESSURE
     Route: 048
  6. BUMETANIDE [Concomitant]
     Indication: DIURETIC THERAPY
     Dosage: HALF A PILL DAILY
     Route: 048
  7. POTASSIUM CHLORIDE [Concomitant]
     Indication: DRUG USE FOR UNKNOWN INDICATION
     Dosage: 1 BID
     Route: 048

REACTIONS (8)
  - CHOLECYSTITIS [None]
  - CHOLELITHIASIS [None]
  - DEPRESSION [None]
  - HALLUCINATION [None]
  - PERSONALITY CHANGE [None]
  - SEPSIS [None]
  - SLEEP TALKING [None]
  - UNEVALUABLE EVENT [None]
